FAERS Safety Report 5410065-6 (Version None)
Quarter: 2007Q3

REPORT INFORMATION
  Report Type: 
  Country: None (occurrence: None)
  Receive Date: 20070809
  Receipt Date: 20070730
  Transmission Date: 20080115
  Serious: Yes (Other)
  Sender: FDA-Public Use
  Company Number: HQWYE462008AUG07

PATIENT
  Age: 40 Year
  Sex: Female

DRUGS (1)
  1. 0.1MG LEVONORGESTREL/0.02MG ETHINYL ESTRADIOL [Suspect]
     Indication: ORAL CONTRACEPTION
     Dosage: UNKNOWN
     Route: 048

REACTIONS (2)
  - CHOLESTASIS [None]
  - LIVER DISORDER [None]
